FAERS Safety Report 9639438 (Version 6)
Quarter: 2014Q1

REPORT INFORMATION
  Report Type: Report from Study
  Country: CA (occurrence: CA)
  Receive Date: 20131022
  Receipt Date: 20140102
  Transmission Date: 20141002
  Serious: Yes (Hospitalization, Other)
  Sender: FDA-Public Use
  Company Number: CA-ABBVIE-13P-028-1160040-00

PATIENT
  Age: 71 Year
  Sex: Male
  Weight: 95.34 kg

DRUGS (1)
  1. HUMIRA [Suspect]
     Indication: PSORIASIS
     Route: 058
     Dates: start: 20110422

REACTIONS (8)
  - Cardiac disorder [Unknown]
  - Cardiac arrest [Unknown]
  - Abscess [Recovering/Resolving]
  - Cholelithiasis [Unknown]
  - Stoma site infection [Unknown]
  - Fatigue [Unknown]
  - Asthenia [Unknown]
  - Cholecystitis infective [Unknown]
